FAERS Safety Report 23578369 (Version 1)
Quarter: 2024Q1

REPORT INFORMATION
  Report Type: Spontaneous
  Country: CA (occurrence: CA)
  Receive Date: 20240229
  Receipt Date: 20240229
  Transmission Date: 20240410
  Serious: Yes (Other)
  Sender: FDA-Public Use
  Company Number: CA-TAKEDA-2024TUS016755

PATIENT
  Sex: Male

DRUGS (6)
  1. VYVANSE [Suspect]
     Active Substance: LISDEXAMFETAMINE DIMESYLATE
     Indication: Asthenia
     Dosage: 50 MILLIGRAM
     Route: 065
  2. VYVANSE [Suspect]
     Active Substance: LISDEXAMFETAMINE DIMESYLATE
     Dosage: 60 MILLIGRAM
     Route: 065
  3. VYVANSE [Suspect]
     Active Substance: LISDEXAMFETAMINE DIMESYLATE
     Dosage: 50 MILLIGRAM
     Route: 065
  4. SOLU-MEDROL [Concomitant]
     Active Substance: METHYLPREDNISOLONE SODIUM SUCCINATE
     Dosage: UNK
     Route: 065
  5. BENADRYL [Concomitant]
     Active Substance: DIPHENHYDRAMINE HYDROCHLORIDE
     Indication: Premedication
     Dosage: UNK
     Route: 065
  6. OCREVUS [Concomitant]
     Active Substance: OCRELIZUMAB
     Dosage: UNK
     Route: 065

REACTIONS (18)
  - Multiple sclerosis [Unknown]
  - Muscle spasms [Unknown]
  - Acne [Recovering/Resolving]
  - Asthenia [Unknown]
  - Therapeutic product effect decreased [Unknown]
  - Feeling abnormal [Unknown]
  - Undersensing [Unknown]
  - Soft tissue disorder [Unknown]
  - Anal incontinence [Unknown]
  - Haemorrhage [Unknown]
  - Hypersomnia [Unknown]
  - Disturbance in attention [Unknown]
  - Central nervous system lesion [Unknown]
  - Memory impairment [Unknown]
  - Dizziness [Unknown]
  - Nausea [Unknown]
  - Vomiting [Unknown]
  - Off label use [Unknown]

NARRATIVE: CASE EVENT DATE: 20130101
